FAERS Safety Report 8544553-0 (Version None)
Quarter: 2012Q3

REPORT INFORMATION
  Report Type: 
  Country: None (occurrence: None)
  Receive Date: 20120727
  Receipt Date: 20120614
  Transmission Date: 20120928
  Serious: No
  Sender: FDA-Public Use
  Company Number: US-ASTRAZENECA-2012SE40331

PATIENT
  Age: 47 Year
  Sex: Female

DRUGS (1)
  1. SEROQUEL [Suspect]
     Indication: BIPOLAR DISORDER
     Dosage: 200MG DAILY AND 400 MG AT BEDTIME, TOTAL 600 MG/DAY
     Route: 048

REACTIONS (5)
  - SOMNOLENCE [None]
  - DRUG INEFFECTIVE [None]
  - DRUG TOLERANCE DECREASED [None]
  - OFF LABEL USE [None]
  - MALAISE [None]
